FAERS Safety Report 20561892 (Version 1)
Quarter: 2022Q1

REPORT INFORMATION
  Report Type: Spontaneous
  Country: US (occurrence: None)
  Receive Date: 20220306
  Receipt Date: 20220306
  Transmission Date: 20220423
  Serious: Yes (Disabling)
  Sender: FDA-Public Use
  Company Number: None

PATIENT
  Sex: Male
  Weight: 110.25 kg

DRUGS (12)
  1. PIROXICAM [Suspect]
     Active Substance: PIROXICAM
     Indication: Osteoarthritis
     Dosage: OTHER QUANTITY : 90 CAPSULE(S);?FREQUENCY : DAILY;?
     Route: 048
  2. PIROXICAM [Suspect]
     Active Substance: PIROXICAM
     Indication: Arthritis
  3. AMLODIPINE [Concomitant]
     Active Substance: AMLODIPINE BESYLATE
  4. MESALAMINE [Concomitant]
  5. TAMSULOSIN [Concomitant]
     Active Substance: TAMSULOSIN
  6. HYDROCHLOROTHIAZIDE [Concomitant]
     Active Substance: HYDROCHLOROTHIAZIDE
  7. RX POTASSIUM SUPPLEMENT (K-DUR 10 MEQ) [Concomitant]
  8. PIROXICAM [Concomitant]
  9. DICLOFENAC [Concomitant]
     Active Substance: DICLOFENAC
  10. ONE-A-DAY BRAND MEN^S VITAMIN [Concomitant]
  11. IBUPROFEN [Concomitant]
     Active Substance: IBUPROFEN
  12. ACETAMINOPHEN [Concomitant]

REACTIONS (11)
  - Joint stiffness [None]
  - Arthralgia [None]
  - Arthralgia [None]
  - Expired product administered [None]
  - Suspected counterfeit product [None]
  - Drug ineffective [None]
  - Pain [None]
  - Gait disturbance [None]
  - Product quality issue [None]
  - Wrong drug [None]
  - Product substitution issue [None]
